FAERS Safety Report 21194714 (Version 1)
Quarter: 2022Q3

REPORT INFORMATION
  Report Type: Spontaneous
  Country: CA (occurrence: CA)
  Receive Date: 20220810
  Receipt Date: 20220810
  Transmission Date: 20221026
  Serious: Yes (Other)
  Sender: FDA-Public Use
  Company Number: CA-ANIPHARMA-2022-CA-001585

PATIENT
  Age: 62 Year
  Sex: Female

DRUGS (1)
  1. CANDESARTAN CILEXETIL [Suspect]
     Active Substance: CANDESARTAN CILEXETIL
     Indication: Hypertension
     Dosage: 4 MG DAILY
     Route: 048
     Dates: start: 20220301, end: 20220501

REACTIONS (7)
  - Contusion [Recovering/Resolving]
  - Gait disturbance [Recovering/Resolving]
  - Pain in extremity [Recovering/Resolving]
  - Arthralgia [Recovering/Resolving]
  - Arthritis [Recovering/Resolving]
  - Bell^s palsy [Recovering/Resolving]
  - Blindness [Recovering/Resolving]
